FAERS Safety Report 10549151 (Version 2)
Quarter: 2014Q4

REPORT INFORMATION
  Report Type: Report from Study
  Country: ES (occurrence: ES)
  Receive Date: 20141028
  Receipt Date: 20141028
  Transmission Date: 20150529
  Serious: Yes (Death, Hospitalization)
  Sender: FDA-Public Use
  Company Number: ES-BAYER-2014-028431

PATIENT
  Age: 66 Year
  Sex: Male
  Weight: 77 kg

DRUGS (5)
  1. PRIMOVIST [Suspect]
     Active Substance: GADOXETATE DISODIUM
     Indication: HEPATOCELLULAR CARCINOMA
     Dosage: 7 ML, ONCE
     Route: 042
     Dates: start: 20140127, end: 20140127
  2. SORAFENIB (RAF KINASE INHIBITOR) [Suspect]
     Active Substance: SORAFENIB
     Indication: HEPATOCELLULAR CARCINOMA
     Dosage: TOTAL DAILY DOSE 400 MG
     Route: 048
     Dates: start: 20140127, end: 20140214
  3. REPAGLINIDE. [Concomitant]
     Active Substance: REPAGLINIDE
     Indication: DIABETES MELLITUS
     Dosage: TOTAL DAILY DOSE 1 MG
     Route: 048
     Dates: start: 2007, end: 20140222
  4. VALSARTAN. [Concomitant]
     Active Substance: VALSARTAN
     Indication: HYPERTENSION
     Dosage: TOTAL DAILY DOSE 40 MG
     Route: 048
     Dates: start: 2008, end: 20140222
  5. THERASPHERE [Suspect]
     Active Substance: YTTRIUM Y-90
     Indication: HEPATOCELLULAR CARCINOMA
     Dosage: TOTAL DAILY DOSE 1.1 GBQ
     Route: 013
     Dates: start: 20130919, end: 20130919

REACTIONS (7)
  - Hepatic failure [Fatal]
  - General physical health deterioration [Not Recovered/Not Resolved]
  - Pleural effusion [None]
  - Ascites [Not Recovered/Not Resolved]
  - Dyspnoea [Not Recovered/Not Resolved]
  - Abdominal cavity drainage [Not Recovered/Not Resolved]
  - Liver function test abnormal [Fatal]

NARRATIVE: CASE EVENT DATE: 20140214
